FAERS Safety Report 5875054-6 (Version None)
Quarter: 2008Q3

REPORT INFORMATION
  Report Type: 
  Country: None (occurrence: None)
  Receive Date: 20080908
  Receipt Date: 20080908
  Transmission Date: 20090109
  Serious: Yes (Life-Threatening, Hospitalization)
  Sender: FDA-Public Use
  Company Number: None

PATIENT
  Age: 41 Year
  Sex: Female
  Weight: 78.5 kg

DRUGS (14)
  1. AMIFOSTINE [Suspect]
     Indication: STEM CELL TRANSPLANT
     Dosage: 740 MG DAILY M2 IV
     Route: 042
     Dates: start: 20060111, end: 20060117
  2. MELPHALAN [Suspect]
     Indication: STEM CELL TRANSPLANT
     Dosage: 180 MG ONCE M2 IV
     Route: 042
     Dates: start: 20060117
  3. VALTREX [Concomitant]
  4. ZOLOFT [Concomitant]
  5. PROTONIX [Concomitant]
  6. NEURONTIN [Concomitant]
  7. COUMADIN [Concomitant]
  8. CALCIUM [Concomitant]
  9. CARBONATE [Concomitant]
  10. VITAMIN D [Concomitant]
  11. BACTRIM [Concomitant]
  12. TYLENOL (CAPLET) [Concomitant]
  13. ATIVAN [Concomitant]
  14. COLACE [Concomitant]

REACTIONS (4)
  - DYSPNOEA [None]
  - PALPITATIONS [None]
  - PULMONARY EMBOLISM [None]
  - TACHYCARDIA [None]
